FAERS Safety Report 9911761 (Version 2)
Quarter: 2014Q2

REPORT INFORMATION
  Report Type: Spontaneous
  Country: MX (occurrence: MX)
  Receive Date: 20140219
  Receipt Date: 20140611
  Transmission Date: 20141212
  Serious: No
  Sender: FDA-Public Use
  Company Number: PHHY2014MX020463

PATIENT
  Sex: Male

DRUGS (4)
  1. TEGRETOL [Suspect]
     Indication: CONVULSION
     Dosage: 200 MG, 3 TABLETS DAILY
     Route: 048
     Dates: start: 198302, end: 201402
  2. TEGRETOL [Suspect]
     Dosage: 400 MG, 3 TABLETS DAILY
     Route: 048
     Dates: start: 198302, end: 201402
  3. KEPPRA [Concomitant]
     Indication: CONVULSION
     Dosage: 3.5 G, DAILY
     Dates: start: 200902
  4. VIMPAT [Concomitant]
     Indication: CONVULSION
     Dosage: 2 DF, DAILY
     Dates: start: 201302

REACTIONS (1)
  - Convulsion [Unknown]
